FAERS Safety Report 20544617 (Version 2)
Quarter: 2022Q1

REPORT INFORMATION
  Report Type: Report from Study
  Country: JP (occurrence: JP)
  Receive Date: 20220303
  Receipt Date: 20220324
  Transmission Date: 20220423
  Serious: Yes (Hospitalization)
  Sender: FDA-Public Use
  Company Number: JP-REGENERON PHARMACEUTICALS, INC.-2022-31154

PATIENT
  Age: 59 Year
  Sex: Male

DRUGS (3)
  1. CEMIPLIMAB [Suspect]
     Active Substance: CEMIPLIMAB
     Indication: Non-small cell lung cancer
     Dosage: 350 MG, Q3W
     Route: 042
     Dates: start: 20220215, end: 20220215
  2. CARBOPLATIN [Suspect]
     Active Substance: CARBOPLATIN
     Indication: Non-small cell lung cancer
     Dosage: AUC OF 5 OR 6 MG/ML/MINUTE , Q3W
     Route: 042
     Dates: start: 20220215, end: 20220215
  3. PEMETREXED [Suspect]
     Active Substance: PEMETREXED
     Indication: Non-small cell lung cancer
     Dosage: 500 MG/M2, Q3W
     Route: 042
     Dates: start: 20220215, end: 20220215

REACTIONS (1)
  - Necrotising oesophagitis [Recovered/Resolved]

NARRATIVE: CASE EVENT DATE: 20220222
